FAERS Safety Report 22612278 (Version 1)
Quarter: 2023Q2

REPORT INFORMATION
  Report Type: Spontaneous
  Country: CN (occurrence: CN)
  Receive Date: 20230617
  Receipt Date: 20230617
  Transmission Date: 20230721
  Serious: Yes (Other)
  Sender: FDA-Public Use
  Company Number: None

PATIENT
  Age: 43 Year
  Sex: Female
  Weight: 61 kg

DRUGS (3)
  1. IVABRADINE HYDROCHLORIDE [Suspect]
     Active Substance: IVABRADINE HYDROCHLORIDE
     Indication: Symptomatic treatment
     Dosage: 10 MILLIGRAM, QD (5 MG, BID)
     Route: 048
     Dates: start: 20230505, end: 20230517
  2. IVABRADINE HYDROCHLORIDE [Suspect]
     Active Substance: IVABRADINE HYDROCHLORIDE
     Indication: Off label use
  3. POSACONAZOLE [Suspect]
     Active Substance: POSACONAZOLE
     Indication: Symptomatic treatment
     Dosage: 300 MILLIGRAM, QD
     Route: 048
     Dates: start: 20230516, end: 20230517

REACTIONS (3)
  - Leukopenia [Unknown]
  - Bradycardia [Recovering/Resolving]
  - Erythropenia [Unknown]

NARRATIVE: CASE EVENT DATE: 20230516
